FAERS Safety Report 24054180 (Version 1)
Quarter: 2024Q3

REPORT INFORMATION
  Report Type: Spontaneous
  Country: HR (occurrence: HR)
  Receive Date: 20240705
  Receipt Date: 20240705
  Transmission Date: 20241017
  Serious: Yes (Life-Threatening, Other)
  Sender: CELLTRION
  Company Number: HR-CELLTRION INC.-2024HR015835

PATIENT

DRUGS (1)
  1. INFLIXIMAB [Suspect]
     Active Substance: INFLIXIMAB
     Indication: Crohn^s disease
     Dosage: 300 MG, 1 DAY (ADR ADEQUATELY LABELLED: YES)
     Route: 042
     Dates: start: 20240206, end: 20240206

REACTIONS (3)
  - Dilated cardiomyopathy [Not Recovered/Not Resolved]
  - Pericardial effusion [Not Recovered/Not Resolved]
  - Overdose [Unknown]

NARRATIVE: CASE EVENT DATE: 20240207
